FAERS Safety Report 25530853 (Version 1)
Quarter: 2025Q3

REPORT INFORMATION
  Report Type: Spontaneous
  Country: EU (occurrence: EU)
  Receive Date: 20250708
  Receipt Date: 20250708
  Transmission Date: 20251020
  Serious: Yes (Other)
  Sender: MYLAN
  Company Number: EU-PFIZER INC-PV202500071164

PATIENT
  Age: 60 Year
  Sex: Female

DRUGS (12)
  1. ZOLEDRONIC ACID [Suspect]
     Active Substance: ZOLEDRONIC ACID
     Indication: Invasive breast carcinoma
  2. ZOLEDRONIC ACID [Suspect]
     Active Substance: ZOLEDRONIC ACID
     Route: 065
  3. ZOLEDRONIC ACID [Suspect]
     Active Substance: ZOLEDRONIC ACID
     Route: 065
  4. ZOLEDRONIC ACID [Suspect]
     Active Substance: ZOLEDRONIC ACID
  5. PALBOCICLIB [Suspect]
     Active Substance: PALBOCICLIB
     Indication: Invasive breast carcinoma
  6. PALBOCICLIB [Suspect]
     Active Substance: PALBOCICLIB
     Route: 065
  7. PALBOCICLIB [Suspect]
     Active Substance: PALBOCICLIB
     Route: 065
  8. PALBOCICLIB [Suspect]
     Active Substance: PALBOCICLIB
  9. LETROZOLE [Suspect]
     Active Substance: LETROZOLE
     Indication: Invasive breast carcinoma
  10. LETROZOLE [Suspect]
     Active Substance: LETROZOLE
     Route: 065
  11. LETROZOLE [Suspect]
     Active Substance: LETROZOLE
     Route: 065
  12. LETROZOLE [Suspect]
     Active Substance: LETROZOLE

REACTIONS (8)
  - Deep vein thrombosis [Unknown]
  - Chronic inflammatory demyelinating polyradiculoneuropathy [Unknown]
  - Metastases to bone [Unknown]
  - Balance disorder [Unknown]
  - Gait disturbance [Unknown]
  - Condition aggravated [Unknown]
  - Motor dysfunction [Unknown]
  - Fall [Unknown]

NARRATIVE: CASE EVENT DATE: 20230901
